FAERS Safety Report 16553632 (Version 1)
Quarter: 2019Q3

REPORT INFORMATION
  Report Type: Spontaneous
  Country: US (occurrence: US)
  Receive Date: 20190710
  Receipt Date: 20190710
  Transmission Date: 20191004
  Serious: No
  Sender: FDA-Public Use
  Company Number: US-GILEAD-2019-0417338

PATIENT
  Sex: Male

DRUGS (6)
  1. SEROQUEL [Concomitant]
     Active Substance: QUETIAPINE FUMARATE
     Dosage: UNKNOWN
  2. LISINOPRIL. [Concomitant]
     Active Substance: LISINOPRIL
     Dosage: UNKNOWN
  3. CORTISPORIN [HYDROCORTISONE;NEOMYCIN SULFATE;POLYMYXIN B SULFATE] [Concomitant]
     Dosage: UNKNOWN
  4. SOFOSBUVIR;VELPATASVIR [Suspect]
     Active Substance: SOFOSBUVIR\VELPATASVIR
     Indication: CHRONIC HEPATITIS C
     Dosage: 1 DOSAGE FORM, QD
     Route: 048
     Dates: start: 20190610
  5. PEPCID [Concomitant]
     Active Substance: FAMOTIDINE
     Dosage: UNKNOWN
  6. RISPERDAL [Concomitant]
     Active Substance: RISPERIDONE
     Dosage: UNKNOWN

REACTIONS (1)
  - Fatigue [Not Recovered/Not Resolved]
